FAERS Safety Report 23637078 (Version 1)
Quarter: 2024Q1

REPORT INFORMATION
  Report Type: Spontaneous
  Country: US (occurrence: US)
  Receive Date: 20240315
  Receipt Date: 20240315
  Transmission Date: 20240410
  Serious: Yes (Hospitalization, Other)
  Sender: FDA-Public Use
  Company Number: US-BAYER-2024A038069

PATIENT
  Age: 42 Year
  Sex: Male

DRUGS (2)
  1. OXYCODONE HYDROCHLORIDE\OXYCODONE TEREPHTHALATE [Suspect]
     Active Substance: OXYCODONE HYDROCHLORIDE\OXYCODONE TEREPHTHALATE
  2. METHAMPHETAMINE [Suspect]
     Active Substance: METHAMPHETAMINE

REACTIONS (7)
  - Ischaemic stroke [None]
  - Eye movement disorder [None]
  - Cerebral haemorrhage [None]
  - Brain injury [None]
  - Toxicity to various agents [None]
  - Incorrect product administration duration [None]
  - Intentional product misuse [None]
